FAERS Safety Report 5315945-8 (Version None)
Quarter: 2007Q2

REPORT INFORMATION
  Report Type: 
  Country: None (occurrence: None)
  Receive Date: 20070503
  Receipt Date: 20070420
  Transmission Date: 20071010
  Serious: Yes (Life-Threatening)
  Sender: FDA-Public Use
  Company Number: JP-ROCHE-438201

PATIENT
  Age: 90 Year
  Sex: Female

DRUGS (6)
  1. TAMIFLU [Suspect]
     Indication: INFLUENZA
     Route: 048
     Dates: start: 20060215, end: 20060215
  2. TAMIFLU [Suspect]
     Route: 048
     Dates: start: 20060216, end: 20060217
  3. CLARITHROMYCIN [Concomitant]
     Route: 048
     Dates: start: 20060215, end: 20060217
  4. LOXONIN [Concomitant]
     Route: 048
  5. MUCOSTA [Concomitant]
     Route: 048
     Dates: start: 20060215, end: 20060217
  6. CELTECT [Concomitant]
     Route: 048
     Dates: start: 20060215, end: 20060217

REACTIONS (2)
  - ABNORMAL BEHAVIOUR [None]
  - HALLUCINATION [None]
